FAERS Safety Report 6617412-8 (Version None)
Quarter: 2010Q1

REPORT INFORMATION
  Report Type: 
  Country: None (occurrence: None)
  Receive Date: 20100308
  Receipt Date: 20100222
  Transmission Date: 20100710
  Serious: Yes (Other)
  Sender: FDA-Public Use
  Company Number: US-BAYER-201015653NA

PATIENT
  Age: 36 Year
  Sex: Female

DRUGS (1)
  1. YAZ [Suspect]
     Indication: PREMENSTRUAL SYNDROME
     Route: 048
     Dates: start: 20070901, end: 20100201

REACTIONS (2)
  - HYPERTENSION [None]
  - SINUS DISORDER [None]
